FAERS Safety Report 6142867-5 (Version None)
Quarter: 2009Q1

REPORT INFORMATION
  Report Type: 
  Country: None (occurrence: None)
  Receive Date: 20090330
  Receipt Date: 20090319
  Transmission Date: 20090719
  Serious: Yes (Hospitalization, Other)
  Sender: FDA-Public Use
  Company Number: AEUSA200900035

PATIENT
  Age: 66 Year
  Sex: Male

DRUGS (7)
  1. GAMUNEX [Suspect]
     Indication: MULTIFOCAL MOTOR NEUROPATHY
     Dosage: 100 GM;OM;IV
     Route: 042
     Dates: start: 20080101
  2. METFORMIN HCL [Concomitant]
  3. ASPIRIN [Concomitant]
  4. ZETIA [Concomitant]
  5. SIMVASTATIN [Concomitant]
  6. IBUPROFEN [Concomitant]
  7. VYTIRUB [Concomitant]

REACTIONS (4)
  - HYDRONEPHROSIS [None]
  - OBSTRUCTIVE UROPATHY [None]
  - PROSTATOMEGALY [None]
  - RENAL FAILURE ACUTE [None]
